FAERS Safety Report 12284292 (Version 1)
Quarter: 2016Q2

REPORT INFORMATION
  Report Type: Spontaneous
  Country: PL (occurrence: PL)
  Receive Date: 20160420
  Receipt Date: 20160420
  Transmission Date: 20160815
  Serious: Yes (Hospitalization)
  Sender: FDA-Public Use
  Company Number: PL-ROCHE-1743982

PATIENT
  Age: 12 Year
  Sex: Female
  Weight: 30 kg

DRUGS (14)
  1. SOMATROPIN [Suspect]
     Active Substance: SOMATROPIN
     Indication: TURNER^S SYNDROME
     Route: 058
  2. ACTRAPID [Concomitant]
     Active Substance: INSULIN HUMAN
     Indication: TYPE 1 DIABETES MELLITUS
     Route: 065
  3. SOMATROPIN [Suspect]
     Active Substance: SOMATROPIN
     Route: 058
  4. SOMATROPIN [Suspect]
     Active Substance: SOMATROPIN
     Route: 058
  5. L-THYROXINE [Concomitant]
     Active Substance: LEVOTHYROXINE
     Indication: BLOOD THYROID STIMULATING HORMONE INCREASED
  6. NOVOMIX 30 [Concomitant]
     Active Substance: INSULIN ASPART
     Indication: TYPE 1 DIABETES MELLITUS
     Route: 065
  7. NOVORAPID [Concomitant]
     Active Substance: INSULIN ASPART
     Indication: TYPE 1 DIABETES MELLITUS
     Route: 065
  8. SOMATROPIN [Suspect]
     Active Substance: SOMATROPIN
     Route: 058
  9. SOMATROPIN [Suspect]
     Active Substance: SOMATROPIN
     Route: 058
  10. SOMATROPIN [Suspect]
     Active Substance: SOMATROPIN
     Route: 058
  11. MIXTARD HUMAN 70/30 [Concomitant]
     Active Substance: INSULIN HUMAN
     Indication: TYPE 1 DIABETES MELLITUS
     Route: 065
  12. ESTRADIOL 17-BETA [Concomitant]
     Route: 065
  13. ESTRADIOL 17-BETA [Concomitant]
     Route: 065
  14. DYDROGESTERONE [Concomitant]
     Active Substance: DYDROGESTERONE
     Route: 065

REACTIONS (9)
  - Ketonuria [Recovered/Resolved]
  - Hyperglycaemia [Recovered/Resolved]
  - Oesophagitis [Unknown]
  - Helicobacter infection [Unknown]
  - Emotional disorder [Unknown]
  - Hypertension [Unknown]
  - Increased appetite [Unknown]
  - Educational problem [Unknown]
  - Drug effect decreased [Unknown]
